FAERS Safety Report 24376046 (Version 1)
Quarter: 2024Q3

REPORT INFORMATION
  Report Type: Spontaneous
  Country: US (occurrence: None)
  Receive Date: 20240927
  Receipt Date: 20240927
  Transmission Date: 20241017
  Serious: Yes (Hospitalization)
  Sender: Public
  Company Number: None

PATIENT
  Sex: Female

DRUGS (4)
  1. ADCIRCA [Suspect]
     Active Substance: TADALAFIL
     Indication: Pulmonary arterial hypertension
     Dosage: FREQUENCY : DAILY;?
     Route: 048
     Dates: start: 202103
  2. OPSUMIT [Concomitant]
     Active Substance: MACITENTAN
  3. WINREVAIR SDV [Concomitant]
  4. REMODUIN MDV [Concomitant]

REACTIONS (2)
  - Nausea [None]
  - Vomiting [None]
